FAERS Safety Report 6274994-6 (Version None)
Quarter: 2009Q3

REPORT INFORMATION
  Report Type: 
  Country: None (occurrence: None)
  Receive Date: 20090721
  Receipt Date: 20090708
  Transmission Date: 20100115
  Serious: Yes (Life-Threatening, Hospitalization)
  Sender: FDA-Public Use
  Company Number: AU-SOLVAY-00209003788

PATIENT
  Age: 83 Year
  Sex: Male

DRUGS (5)
  1. PERINDO 4 MG [Suspect]
     Indication: HYPERTENSION
     Dosage: DAILY DOSE: 2 MILLIGRAM(S), AS USED: 0.5 DOSAGE FORM
     Route: 048
     Dates: start: 20090523, end: 20090530
  2. COVERSYL [Concomitant]
     Indication: DRUG USE FOR UNKNOWN INDICATION
     Dosage: DAILY DOSE:  UNKNOWN
     Route: 065
     Dates: end: 20090522
  3. PENICILLIN [Concomitant]
     Indication: INFECTION PROPHYLAXIS
     Dosage: DAILY DOSE:  UNKNOWN
     Route: 065
     Dates: start: 20050101
  4. QVAR 40 [Concomitant]
     Indication: DRUG USE FOR UNKNOWN INDICATION
     Dosage: DAILY DOSE:  UNKNOWN
     Route: 065
  5. XALATAN [Concomitant]
     Indication: DRUG USE FOR UNKNOWN INDICATION
     Dosage: DAILY DOSE:  UNKNOWN
     Route: 065

REACTIONS (4)
  - CIRCULATORY COLLAPSE [None]
  - HYPONATRAEMIA [None]
  - STAPHYLOCOCCAL SEPSIS [None]
  - WRONG DRUG ADMINISTERED [None]
